FAERS Safety Report 5315335-8 (Version None)
Quarter: 2007Q2

REPORT INFORMATION
  Report Type: 
  Country: None (occurrence: None)
  Receive Date: 20070427
  Receipt Date: 20070416
  Transmission Date: 20071010
  Serious: Yes (Life-Threatening, Hospitalization)
  Sender: FDA-Public Use
  Company Number: GXKR2007US03534

PATIENT
  Age: 50 Year
  Sex: Male

DRUGS (5)
  1. AMITRIPTLINE HCL [Suspect]
     Dosage: 13.5 G, ORAL
     Route: 048
  2. LORAZEPAM [Concomitant]
  3. OXCARBAZEPINE [Concomitant]
  4. SERTRALINE [Concomitant]
  5. HYDROXYZINE [Concomitant]

REACTIONS (10)
  - BLOOD PH INCREASED [None]
  - BLOOD SODIUM INCREASED [None]
  - BRUGADA SYNDROME [None]
  - COMA [None]
  - CONVULSION [None]
  - DRUG LEVEL ABOVE THERAPEUTIC [None]
  - ELECTROCARDIOGRAM QRS COMPLEX PROLONGED [None]
  - OVERDOSE [None]
  - PULSE ABSENT [None]
  - TACHYCARDIA [None]
